FAERS Safety Report 25697602 (Version 2)
Quarter: 2025Q4

REPORT INFORMATION
  Report Type: Report from Study
  Country: EU (occurrence: EU)
  Receive Date: 20250818
  Receipt Date: 20251104
  Transmission Date: 20260117
  Serious: Yes (Hospitalization, Other)
  Sender: ABBVIE
  Company Number: EU-ABBVIE-6374433

PATIENT
  Age: 79 Year
  Sex: Male

DRUGS (2)
  1. FOSCARBIDOPA\FOSLEVODOPA [Suspect]
     Active Substance: FOSCARBIDOPA\FOSLEVODOPA
     Indication: Parkinson^s disease
     Dosage: CRN: 0.21 ML/H, CR: 0.23 ML/H, CRH: 0.25 ML/H, ED: 0.15 ML ?FIRST ADMIN DATE: 2025
     Route: 058
  2. FOSCARBIDOPA\FOSLEVODOPA [Suspect]
     Active Substance: FOSCARBIDOPA\FOSLEVODOPA
     Dosage: CRN 0.17 ML/H, CR 0.21 ML/H CRH 0.23 ML/H, ED: 0.15 ML.?LAST ADMIN DATE: 2025
     Route: 058
     Dates: start: 20250618

REACTIONS (6)
  - Dysphagia [Not Recovered/Not Resolved]
  - Gastric cancer [Not Recovered/Not Resolved]
  - Dyskinesia [Unknown]
  - Mobility decreased [Not Recovered/Not Resolved]
  - Bedridden [Unknown]
  - General physical health deterioration [Unknown]

NARRATIVE: CASE EVENT DATE: 20250101
